FAERS Safety Report 16312215 (Version 1)
Quarter: 2019Q2

REPORT INFORMATION
  Report Type: Spontaneous
  Country: DE (occurrence: DE)
  Receive Date: 20190515
  Receipt Date: 20190515
  Transmission Date: 20190711
  Serious: Yes (Other)
  Sender: FDA-Public Use
  Company Number: DE-JNJFOC-20190507143

PATIENT
  Sex: Female

DRUGS (2)
  1. REGAINE MANNER SCHAUM [Suspect]
     Active Substance: MINOXIDIL
     Indication: ALOPECIA
     Route: 061
  2. REGAINE MANNER SCHAUM [Suspect]
     Active Substance: MINOXIDIL
     Route: 061

REACTIONS (5)
  - Arrhythmia [Recovered/Resolved]
  - Product use issue [Unknown]
  - Off label use [Unknown]
  - Alopecia [Not Recovered/Not Resolved]
  - Cardiovascular disorder [Recovered/Resolved]
